FAERS Safety Report 19813730 (Version 1)
Quarter: 2021Q3

REPORT INFORMATION
  Report Type: Spontaneous
  Country: NL (occurrence: NL)
  Receive Date: 20210909
  Receipt Date: 20210909
  Transmission Date: 20211014
  Serious: Yes (Life-Threatening, Hospitalization)
  Sender: FDA-Public Use
  Company Number: NL-ALVOGEN-2021-ALVOGEN-117449

PATIENT
  Age: 32 Year
  Sex: Female
  Weight: 80 kg

DRUGS (3)
  1. LISDEXAMFETAMINE [Concomitant]
     Active Substance: LISDEXAMFETAMINE
     Indication: PRODUCT USED FOR UNKNOWN INDICATION
     Dosage: CAPSULE, 50 MG (MILLIGRAM)
  2. OXYCODONE [Suspect]
     Active Substance: OXYCODONE
     Indication: POST PROCEDURAL COMPLICATION
  3. COVID?19 VACCINE NOS. [Interacting]
     Active Substance: COVID-19 VACCINE NOS
     Indication: COVID-19 IMMUNISATION
     Dates: start: 20210704

REACTIONS (6)
  - Injection site warmth [Recovered/Resolved]
  - Amenorrhoea [Not Recovered/Not Resolved]
  - Injection site pain [Recovered/Resolved]
  - Drug interaction [Recovering/Resolving]
  - Headache [Recovered/Resolved]
  - Injection site inflammation [Recovered/Resolved]

NARRATIVE: CASE EVENT DATE: 20210704
